FAERS Safety Report 6366869-9 (Version None)
Quarter: 2009Q3

REPORT INFORMATION
  Report Type: 
  Country: None (occurrence: None)
  Receive Date: 20090921
  Receipt Date: 20090907
  Transmission Date: 20100115
  Serious: Yes (Hospitalization)
  Sender: FDA-Public Use
  Company Number: GB-MYLANLABS-2009S1015829

PATIENT
  Age: 69 Year
  Sex: Male

DRUGS (6)
  1. ATENOLOL [Suspect]
     Indication: DRUG USE FOR UNKNOWN INDICATION
  2. FELODIPINE [Suspect]
     Indication: DRUG USE FOR UNKNOWN INDICATION
  3. RAMIPRIL [Suspect]
     Indication: HYPERTENSION
     Dates: start: 19980101
  4. ACETYLSALICYLIC ACID [Suspect]
     Indication: DRUG USE FOR UNKNOWN INDICATION
  5. AMITRIPTYLINE [Suspect]
     Indication: DRUG USE FOR UNKNOWN INDICATION
  6. ATORVASTATIN [Suspect]
     Indication: DRUG USE FOR UNKNOWN INDICATION

REACTIONS (3)
  - ANGIOEDEMA [None]
  - DYSKINESIA [None]
  - SALIVARY HYPERSECRETION [None]
